FAERS Safety Report 7818174-9 (Version None)
Quarter: 2011Q4

REPORT INFORMATION
  Report Type: 
  Country: None (occurrence: None)
  Receive Date: 20111017
  Receipt Date: 20111013
  Transmission Date: 20120403
  Serious: Yes (Death)
  Sender: FDA-Public Use
  Company Number: US-EISAI INC-E2020-09852-SPO-US

PATIENT
  Sex: Female

DRUGS (4)
  1. ARICEPT [Suspect]
     Route: 048
  2. COUMADIN [Suspect]
     Dosage: UNKNOWN
  3. LIPITOR [Suspect]
     Dosage: UNKNOWN
  4. ARICEPT [Suspect]
     Route: 048

REACTIONS (1)
  - DEMENTIA ALZHEIMER'S TYPE [None]
